FAERS Safety Report 7249046-9 (Version None)
Quarter: 2011Q1

REPORT INFORMATION
  Report Type: 
  Country: None (occurrence: None)
  Receive Date: 20110128
  Receipt Date: 20110117
  Transmission Date: 20110831
  Serious: Yes (Other)
  Sender: FDA-Public Use
  Company Number: US-CELGENEUS-163-21880-11011705

PATIENT
  Sex: Male

DRUGS (13)
  1. REVLIMID [Suspect]
     Indication: MULTIPLE MYELOMA
     Route: 048
     Dates: start: 20080901
  2. ZOMETA [Concomitant]
     Route: 065
  3. COQ-10 [Concomitant]
     Route: 065
  4. FLUOXETINE [Concomitant]
     Route: 065
  5. STOOL SOFTENER [Concomitant]
     Route: 065
  6. ASA [Concomitant]
     Route: 048
  7. DEXAMETHASONE [Concomitant]
     Route: 065
  8. VITAMIN B-COMPLEX [Concomitant]
     Route: 065
  9. ASCORBIC ACID [Concomitant]
     Route: 065
  10. REVLIMID [Suspect]
     Route: 048
     Dates: start: 20090101
  11. REVLIMID [Suspect]
     Route: 048
     Dates: start: 20100901
  12. LIPITOR [Concomitant]
     Route: 065
  13. MULTI-VITAMINS [Concomitant]
     Route: 065

REACTIONS (3)
  - DIARRHOEA [None]
  - CARDIAC DISORDER [None]
  - WEIGHT DECREASED [None]
